FAERS Safety Report 15133913 (Version 1)
Quarter: 2018Q3

REPORT INFORMATION
  Report Type: Spontaneous
  Country: US (occurrence: US)
  Receive Date: 20180615
  Receipt Date: 20180615
  Transmission Date: 20181010
  Serious: No
  Sender: FDA-Public Use
  Company Number: None

PATIENT
  Sex: Female

DRUGS (2)
  1. ZOFRAN [Suspect]
     Active Substance: ONDANSETRON HYDROCHLORIDE
  2. COMPAZINE [Suspect]
     Active Substance: PROCHLORPERAZINE MALEATE

REACTIONS (3)
  - Condition aggravated [None]
  - Nausea [None]
  - Drug ineffective [None]
